FAERS Safety Report 21745273 (Version 1)
Quarter: 2022Q4

REPORT INFORMATION
  Report Type: Spontaneous
  Country: MA (occurrence: MA)
  Receive Date: 20221219
  Receipt Date: 20221219
  Transmission Date: 20230113
  Serious: Yes (Hospitalization)
  Sender: FDA-Public Use
  Company Number: MA-PFIZER INC-PV202200120625

PATIENT
  Age: 47 Year
  Sex: Female

DRUGS (1)
  1. ENBREL [Suspect]
     Active Substance: ETANERCEPT
     Indication: Product used for unknown indication
     Dosage: 25 MILLIGRAM, QWK
     Route: 065

REACTIONS (4)
  - Pain in extremity [Recovering/Resolving]
  - Neck pain [Recovering/Resolving]
  - Peripheral swelling [Recovering/Resolving]
  - Swelling [Recovering/Resolving]
